FAERS Safety Report 7859102-X (Version None)
Quarter: 2011Q4

REPORT INFORMATION
  Report Type: 
  Country: None (occurrence: None)
  Receive Date: 20111027
  Receipt Date: 20111021
  Transmission Date: 20120403
  Serious: Yes (Death, Other)
  Sender: FDA-Public Use
  Company Number: PHHY2011MX93758

PATIENT
  Sex: Female

DRUGS (2)
  1. DIOVAN [Suspect]
     Indication: HYPERTENSION
     Dosage: 80 MG, QD
     Dates: start: 20080827
  2. CINNARIZINE [Concomitant]

REACTIONS (3)
  - DEATH [None]
  - GASTROINTESTINAL HAEMORRHAGE [None]
  - SKIN CANCER [None]
